FAERS Safety Report 6199203-8 (Version None)
Quarter: 2009Q2

REPORT INFORMATION
  Report Type: 
  Country: None (occurrence: None)
  Receive Date: 20090522
  Receipt Date: 20090518
  Transmission Date: 20091009
  Serious: Yes (Death)
  Sender: FDA-Public Use
  Company Number: IT-ROCHE-633728

PATIENT

DRUGS (2)
  1. CAPECITABINE [Suspect]
     Dosage: GIVEN 12 HOUR APART FROM DAY 1 (EVENING) TO DAY 11 (MORNING); CYCLE REPEATED EVERY TWO WEEKS
     Route: 048
  2. OXALIPLATIN [Suspect]
     Dosage: 2 HOURS ON DAY 1; CYCLE REPEATED EVERY TWO WEEKS
     Route: 042

REACTIONS (1)
  - DIARRHOEA [None]
